FAERS Safety Report 15760045 (Version 3)
Quarter: 2020Q2

REPORT INFORMATION
  Report Type: Spontaneous
  Country: US (occurrence: US)
  Receive Date: 20181226
  Receipt Date: 20200406
  Transmission Date: 20200713
  Serious: Yes (Hospitalization, Other)
  Sender: FDA-Public Use
  Company Number: US-009507513-1812USA010612

PATIENT
  Sex: Male
  Weight: 115.65 kg

DRUGS (4)
  1. BYETTA [Suspect]
     Active Substance: EXENATIDE
     Indication: PRODUCT USED FOR UNKNOWN INDICATION
     Dosage: 5 MCG ONCE DAILY
     Route: 065
     Dates: start: 20090415, end: 200905
  2. VICTOZA [Suspect]
     Active Substance: LIRAGLUTIDE
     Dosage: 1.8 MG DAILY
     Route: 065
     Dates: start: 20140529, end: 201701
  3. VICTOZA [Suspect]
     Active Substance: LIRAGLUTIDE
     Indication: PRODUCT USED FOR UNKNOWN INDICATION
     Dosage: UNK
     Route: 065
     Dates: start: 20100408, end: 201007
  4. JANUVIA [Suspect]
     Active Substance: SITAGLIPTIN PHOSPHATE
     Indication: PRODUCT USED FOR UNKNOWN INDICATION
     Dosage: 100MG DAILY
     Route: 065
     Dates: start: 20120619, end: 201405

REACTIONS (38)
  - Oesophagogastroduodenoscopy [Unknown]
  - Blood cholesterol increased [Unknown]
  - Diabetic neuropathy [Unknown]
  - Bladder cancer [Unknown]
  - Coronary angioplasty [Unknown]
  - Weight decreased [Unknown]
  - Gastrooesophageal reflux disease [Unknown]
  - Upper limb fracture [Unknown]
  - Diabetes mellitus inadequate control [Unknown]
  - Biopsy skin [Unknown]
  - Polypectomy [Unknown]
  - Peripheral coldness [Unknown]
  - Barrett^s oesophagus [Unknown]
  - Stent placement [Unknown]
  - Diarrhoea [Unknown]
  - Peripheral vascular disorder [Unknown]
  - Nephrosclerosis [Unknown]
  - Polypectomy [Unknown]
  - Blood triglycerides increased [Unknown]
  - Hypertension [Unknown]
  - Arthropathy [Unknown]
  - Chronic kidney disease [Unknown]
  - Angina pectoris [Recovered/Resolved]
  - Vertebral artery stenosis [Unknown]
  - Gastric ulcer [Unknown]
  - Oesophagogastroduodenoscopy [Unknown]
  - Colonoscopy [Unknown]
  - Myocardial infarction [Unknown]
  - Carotid artery disease [Unknown]
  - Diabetic nephropathy [Unknown]
  - Tendon sheath incision [Unknown]
  - Weight increased [Unknown]
  - Pancreatic carcinoma [Unknown]
  - Hepatic steatosis [Unknown]
  - Colonoscopy [Unknown]
  - Stress [Unknown]
  - Vision blurred [Unknown]
  - Hypoaesthesia [Unknown]

NARRATIVE: CASE EVENT DATE: 20130214
